FAERS Safety Report 25272757 (Version 1)
Quarter: 2025Q2

REPORT INFORMATION
  Report Type: Report from Study
  Country: US (occurrence: US)
  Receive Date: 20250506
  Receipt Date: 20250506
  Transmission Date: 20250716
  Serious: Yes (Other)
  Sender: GILEAD
  Company Number: US-GILEAD-2025-0712513

PATIENT
  Sex: Male

DRUGS (4)
  1. SOFOSBUVIR\VELPATASVIR [Suspect]
     Active Substance: SOFOSBUVIR\VELPATASVIR
     Indication: Chronic hepatitis C
     Dosage: 400/100MG, 1 TABLET BY MOUTH DAILY, TAKEN AT 6PM AND EFFECTS NOTICED AT BEDTIME.
     Route: 048
     Dates: start: 20250416
  2. NEXIUM [Concomitant]
     Active Substance: ESOMEPRAZOLE MAGNESIUM
     Indication: Dyspepsia
  3. LISINOPRIL [Concomitant]
     Active Substance: LISINOPRIL
  4. PODOFILOX [Concomitant]
     Active Substance: PODOFILOX
     Indication: Anogenital warts

REACTIONS (6)
  - Cerebrovascular accident [Unknown]
  - Myocardial infarction [Unknown]
  - Muscle tightness [Unknown]
  - Dyspepsia [Unknown]
  - Fear [Unknown]
  - Anogenital warts [Not Recovered/Not Resolved]
